FAERS Safety Report 16581017 (Version 2)
Quarter: 2019Q3

REPORT INFORMATION
  Report Type: Report from Study
  Country: US (occurrence: US)
  Receive Date: 20190716
  Receipt Date: 20190723
  Transmission Date: 20191004
  Serious: Yes (Other)
  Sender: FDA-Public Use
  Company Number: US-BAUSCH-BL-2019-018882

PATIENT
  Sex: Female
  Weight: 67.65 kg

DRUGS (1)
  1. UCERIS [Suspect]
     Active Substance: BUDESONIDE
     Indication: COLITIS ULCERATIVE
     Dosage: ABOUT 1 AND 1/2 MONTHS
     Route: 048
     Dates: start: 2019, end: 2019

REACTIONS (10)
  - Colitis ulcerative [Not Recovered/Not Resolved]
  - Inflammation [Unknown]
  - Product availability issue [Unknown]
  - Therapy cessation [Unknown]
  - Product supply issue [Unknown]
  - Blood glucose increased [Unknown]
  - Symptom recurrence [Not Recovered/Not Resolved]
  - Loss of personal independence in daily activities [Unknown]
  - Inappropriate schedule of product administration [Unknown]
  - Feeling abnormal [Unknown]

NARRATIVE: CASE EVENT DATE: 2019
